FAERS Safety Report 11937129 (Version 1)
Quarter: 2016Q1

REPORT INFORMATION
  Report Type: Spontaneous
  Country: US (occurrence: US)
  Receive Date: 20160121
  Receipt Date: 20160121
  Transmission Date: 20160526
  Serious: No
  Sender: FDA-Public Use
  Company Number: US-BIOGEN-2016BI00170159

PATIENT
  Sex: Female

DRUGS (1)
  1. AVONEX [Suspect]
     Active Substance: INTERFERON BETA-1A
     Indication: MULTIPLE SCLEROSIS
     Route: 065
     Dates: start: 20121117, end: 20130331

REACTIONS (5)
  - Diabetes mellitus [Unknown]
  - Hypoaesthesia [Unknown]
  - Visual impairment [Unknown]
  - Hypertension [Unknown]
  - Asthma [Unknown]
